FAERS Safety Report 8398652-7 (Version None)
Quarter: 2012Q2

REPORT INFORMATION
  Report Type: 
  Country: None (occurrence: None)
  Receive Date: 20120531
  Receipt Date: 20120528
  Transmission Date: 20120825
  Serious: Yes (Death, Hospitalization, Other)
  Sender: FDA-Public Use
  Company Number: CN-ROCHE-1072916

PATIENT

DRUGS (7)
  1. SIROLIMUS [Suspect]
     Indication: IMMUNOSUPPRESSION
  2. CYCLOSPORINE [Suspect]
     Indication: IMMUNOSUPPRESSION
  3. TACROLIMUS [Suspect]
     Indication: IMMUNOSUPPRESSION
  4. AZATHIOPRINE [Suspect]
     Indication: IMMUNOSUPPRESSION
  5. SIROLIMUS [Suspect]
  6. CELLCEPT [Suspect]
     Indication: IMMUNOSUPPRESSION
  7. PREDNISONE TAB [Suspect]
     Indication: IMMUNOSUPPRESSION

REACTIONS (3)
  - TRANSITIONAL CELL CARCINOMA METASTATIC [None]
  - BREAST CANCER [None]
  - TRANSITIONAL CELL CARCINOMA [None]
